APPROVED DRUG PRODUCT: CLARITHROMYCIN
Active Ingredient: CLARITHROMYCIN
Strength: 500MG
Dosage Form/Route: TABLET;ORAL
Application: A065137 | Product #002
Applicant: IVAX PHARMACEUTICALS INC SUB TEVA PHARMACEUTICALS USA
Approved: May 31, 2005 | RLD: No | RS: No | Type: DISCN